FAERS Safety Report 13138743 (Version 2)
Quarter: 2017Q1

REPORT INFORMATION
  Report Type: Spontaneous
  Country: US (occurrence: US)
  Receive Date: 20170123
  Receipt Date: 20170208
  Transmission Date: 20170428
  Serious: No
  Sender: FDA-Public Use
  Company Number: US-PFIZER INC-2017026531

PATIENT
  Age: 36 Year
  Sex: Male
  Weight: 74.4 kg

DRUGS (7)
  1. CISPLATIN. [Suspect]
     Active Substance: CISPLATIN
     Dosage: UNK UNK, CYCLIC
     Dates: start: 20161019
  2. GEMCITABINE HYDROCHLORIDE. [Suspect]
     Active Substance: GEMCITABINE HYDROCHLORIDE
     Indication: RENAL CANCER
     Dosage: UNK UNK, CYCLIC
     Dates: start: 20160921
  3. CISPLATIN. [Suspect]
     Active Substance: CISPLATIN
     Indication: RENAL CANCER
     Dosage: UNK UNK, CYCLIC
     Dates: start: 20160921
  4. CISPLATIN. [Suspect]
     Active Substance: CISPLATIN
     Dosage: UNK UNK, CYCLIC
     Dates: start: 201611
  5. GEMCITABINE HYDROCHLORIDE. [Suspect]
     Active Substance: GEMCITABINE HYDROCHLORIDE
     Dosage: UNK UNK, CYCLIC
     Dates: start: 201611
  6. GEMZAR [Suspect]
     Active Substance: GEMCITABINE HYDROCHLORIDE
     Indication: RENAL CANCER
     Dosage: UNK
  7. GEMCITABINE HYDROCHLORIDE. [Suspect]
     Active Substance: GEMCITABINE HYDROCHLORIDE
     Dosage: UNK UNK, CYCLIC
     Dates: start: 20161019

REACTIONS (3)
  - Drug dose omission [Unknown]
  - Fatigue [Not Recovered/Not Resolved]
  - Neoplasm progression [Unknown]
